FAERS Safety Report 8167487-2 (Version None)
Quarter: 2012Q1

REPORT INFORMATION
  Report Type: 
  Country: None (occurrence: None)
  Receive Date: 20120221
  Receipt Date: 20120206
  Transmission Date: 20120608
  Serious: Yes (Hospitalization)
  Sender: FDA-Public Use
  Company Number: USW201202-000027

PATIENT
  Age: 64 Year
  Sex: Female

DRUGS (10)
  1. ENTACAPONE [Concomitant]
  2. AZILECT [Concomitant]
  3. MADOPARK QUICK MITE (LEVODOPA, BENSERAZIDE) [Concomitant]
  4. AMITRIPTYLINE HCL [Concomitant]
  5. APOKYN [Suspect]
     Indication: PARKINSON'S DISEASE
  6. BEHEPAN (VITAMIN B12) [Concomitant]
  7. MADOPARK DEPOT (LEVODOPA, BENSERAZIDE) [Concomitant]
  8. OXAZEPAM [Concomitant]
  9. FOLACIN (FOLIC ACID) [Concomitant]
  10. SIFROL (PRAMIPEXOLE) [Concomitant]

REACTIONS (3)
  - FATIGUE [None]
  - DYSPNOEA [None]
  - HAEMOLYTIC ANAEMIA [None]
